FAERS Safety Report 5359970-X (Version None)
Quarter: 2007Q2

REPORT INFORMATION
  Report Type: 
  Country: None (occurrence: None)
  Receive Date: 20070617
  Receipt Date: 20070605
  Transmission Date: 20071010
  Serious: Yes (Hospitalization)
  Sender: FDA-Public Use
  Company Number: FR-JNJFOC-20070601787

PATIENT
  Age: 40 Year
  Sex: Male
  Weight: 72 kg

DRUGS (14)
  1. REMICADE [Suspect]
     Route: 042
  2. REMICADE [Suspect]
     Route: 042
  3. REMICADE [Suspect]
     Route: 042
  4. REMICADE [Suspect]
     Route: 042
  5. REMICADE [Suspect]
     Route: 042
  6. REMICADE [Suspect]
     Route: 042
  7. REMICADE [Suspect]
     Route: 042
  8. REMICADE [Suspect]
     Route: 042
  9. REMICADE [Suspect]
     Route: 042
  10. REMICADE [Suspect]
     Indication: ANKYLOSING SPONDYLITIS
     Route: 042
  11. PARACETAMOL [Concomitant]
  12. CELEBREX [Concomitant]
  13. OMEPRAZOLE [Concomitant]
  14. APRANAX [Concomitant]

REACTIONS (2)
  - DRUG SPECIFIC ANTIBODY PRESENT [None]
  - POLYNEUROPATHY [None]
